FAERS Safety Report 10464221 (Version 1)
Quarter: 2014Q3

REPORT INFORMATION
  Report Type: Spontaneous
  Country: FR (occurrence: FR)
  Receive Date: 20140919
  Receipt Date: 20140919
  Transmission Date: 20150326
  Serious: Yes (Disabling)
  Sender: FDA-Public Use
  Company Number: FR-SA-2014SA126894

PATIENT
  Age: 65 Year
  Sex: Female

DRUGS (11)
  1. FLUOROURACIL. [Suspect]
     Active Substance: FLUOROURACIL
     Indication: PSEUDOMYXOMA PERITONEI
     Route: 040
     Dates: start: 20140703, end: 20140703
  2. CALCIUM FOLINATE [Concomitant]
     Active Substance: LEUCOVORIN CALCIUM
     Indication: PSEUDOMYXOMA PERITONEI
     Route: 042
     Dates: start: 20140703, end: 20140703
  3. SOLU-MEDROL [Concomitant]
     Active Substance: METHYLPREDNISOLONE SODIUM SUCCINATE
     Dates: start: 20140519
  4. ELOXATIN [Suspect]
     Active Substance: OXALIPLATIN
     Indication: PSEUDOMYXOMA PERITONEI
     Route: 042
     Dates: start: 20140703, end: 20140703
  5. ELOXATIN [Suspect]
     Active Substance: OXALIPLATIN
     Indication: PSEUDOMYXOMA PERITONEI
     Route: 042
     Dates: start: 20140519, end: 20140519
  6. EMEND [Concomitant]
     Active Substance: APREPITANT
  7. IRINOTECAN [Suspect]
     Active Substance: IRINOTECAN
     Indication: PSEUDOMYXOMA PERITONEI
     Route: 042
     Dates: start: 20140804, end: 20140804
  8. CALCIUM FOLINATE [Concomitant]
     Active Substance: LEUCOVORIN CALCIUM
     Indication: PSEUDOMYXOMA PERITONEI
     Route: 042
     Dates: start: 20140519
  9. FLUOROURACIL. [Suspect]
     Active Substance: FLUOROURACIL
     Indication: PSEUDOMYXOMA PERITONEI
     Route: 040
     Dates: start: 20140804, end: 20140804
  10. ZOPHREN [Concomitant]
     Active Substance: ONDANSETRON
     Dates: start: 20140519
  11. FLUOROURACIL. [Suspect]
     Active Substance: FLUOROURACIL
     Indication: PSEUDOMYXOMA PERITONEI
     Dosage: 5-FU BOLUS (756 MG) AND 5-FU INFUSION (4536 MG)
     Dates: start: 20140519, end: 20140519

REACTIONS (2)
  - Tinnitus [Not Recovered/Not Resolved]
  - Sudden hearing loss [Not Recovered/Not Resolved]

NARRATIVE: CASE EVENT DATE: 20140801
